FAERS Safety Report 18242885 (Version 1)
Quarter: 2020Q3

REPORT INFORMATION
  Report Type: Spontaneous
  Country: US (occurrence: US)
  Receive Date: 20200908
  Receipt Date: 20200908
  Transmission Date: 20201103
  Serious: No
  Sender: FDA-Public Use
  Company Number: US-PFIZER INC-2020343552

PATIENT
  Age: 79 Year

DRUGS (27)
  1. DESONIDE. [Concomitant]
     Active Substance: DESONIDE
     Dosage: UNK, AS NEEDED
     Route: 061
  2. NITROGLYCERIN. [Concomitant]
     Active Substance: NITROGLYCERIN
     Dosage: 0.3 MG
     Route: 060
  3. VITAMIN D3 [Concomitant]
     Active Substance: CHOLECALCIFEROL
     Dosage: 200 IU, DAILY (TAKE 2 TABLET(S) EVERY DAY)
     Route: 048
  4. FLUTICASONE PROPIONATE. [Concomitant]
     Active Substance: FLUTICASONE PROPIONATE
     Dosage: UNK, AS NEEDED
  5. TYLENOL ARTHRITIS PAIN [Concomitant]
     Active Substance: ACETAMINOPHEN
     Indication: ARTHRITIS
     Dosage: 1300 MG, 2X/DAY (TAKE 2 TABLET(S) TWICE A DAY)
     Route: 048
  6. FUROSEMIDE. [Concomitant]
     Active Substance: FUROSEMIDE
     Dosage: 20 MG, AS NEEDED (TAKE 1 TABLET(S) BY ORAL ROUTE)
     Route: 048
  7. KETOCONAZOLE. [Concomitant]
     Active Substance: KETOCONAZOLE
     Dosage: UNK (2 % SHAMPOO AS DIRECTED)
  8. OMEPRAZOLE. [Concomitant]
     Active Substance: OMEPRAZOLE
     Dosage: UNK, DAILY (DELAYED RELEASE 1 TABLET DAILY)
  9. AZELASTINE. [Concomitant]
     Active Substance: AZELASTINE HYDROCHLORIDE
     Dosage: UNK, 2X/DAY (2 SPRAY(S) TWICE A DAY BY INTRANASAL ROUTE FOR 30 DAYS)
     Route: 045
  10. CHLORHEXIDINE GLUCONATE. [Concomitant]
     Active Substance: CHLORHEXIDINE GLUCONATE
     Dosage: UNK, AS NEEDED
  11. METHOTREXATE. [Concomitant]
     Active Substance: METHOTREXATE
     Dosage: 12.5 MG, WEEKLY (5 TABLET(S) EVERY WEEK BY ORAL ROUTE FOR 90 DAYS)
     Route: 048
  12. TAMSULOSIN [Concomitant]
     Active Substance: TAMSULOSIN
     Dosage: 0.4 MG, DAILY (TAKE 1 CAPSULE(S) EVERY DAY BY ORAL ROUTE)
     Route: 048
  13. OMEPRAZOLE. [Concomitant]
     Active Substance: OMEPRAZOLE
     Dosage: 40 MG
  14. CODEINE [Suspect]
     Active Substance: CODEINE
     Dosage: UNK
  15. ACYCLOVIR [ACICLOVIR] [Concomitant]
     Active Substance: ACYCLOVIR
     Dosage: 400 MG, DAILY
     Route: 048
  16. PROAIR HFA [Concomitant]
     Active Substance: ALBUTEROL SULFATE
     Indication: ASTHMA
     Dosage: UNK, AS NEEDED (INHALE 1 TO 2 PUFFS EVERY 4 TO 6 HOURS AS NEEDED)
  17. MORPHINE SULFATE. [Suspect]
     Active Substance: MORPHINE SULFATE
     Dosage: UNK
  18. ALBUTEROL SULFATE. [Concomitant]
     Active Substance: ALBUTEROL SULFATE
     Dosage: 3 ML, 3X/DAY (2.5 MG/3 ML (0.083 %) SOLUTION TOR NEBULIZATION/BY NEBULIZATION ROUTE FOR 30 DAYS)
     Route: 045
  19. FOLIC ACID. [Concomitant]
     Active Substance: FOLIC ACID
     Dosage: 1 MG, DAILY (2 TABLET(S) EVERY DAY BY ORAL ROUTE FOR 90 DAYS)
     Route: 048
  20. KETOCONAZOLE. [Concomitant]
     Active Substance: KETOCONAZOLE
     Dosage: UNK (2 % TOPICAL CREAM AS DIRECTED)
     Route: 061
  21. POLYETHYLENE GLYCOL 3350. [Concomitant]
     Active Substance: POLYETHYLENE GLYCOL 3350
     Dosage: 17 G, AS NEEDED (17 GRAM/DOSE)
     Route: 048
  22. POTASSIUM GLUCONATE [Concomitant]
     Active Substance: POTASSIUM GLUCONATE
     Dosage: 595 MG, DAILY (1 TABLET(S) EVERY DAY BY ORAL ROUTE)
     Route: 048
  23. ASPIRIN 81 [Concomitant]
     Active Substance: ASPIRIN
     Dosage: 81 MG (EVERY OTHER DAY BY ORAL ROUTE)
     Route: 048
     Dates: start: 20120112
  24. INFLECTRA [Concomitant]
     Active Substance: INFLIXIMAB-DYYB
     Dosage: 400 MG
     Route: 042
  25. MUPIROCIN. [Concomitant]
     Active Substance: MUPIROCIN
     Dosage: UNK, 3X/DAY (SMALL AMOUNT TO THE AFFECTED AREA BY TOPICAL ROUTE/FOR 10 DAYS)
     Route: 061
  26. SYMBICORT [Concomitant]
     Active Substance: BUDESONIDE\FORMOTEROL FUMARATE DIHYDRATE
     Dosage: UNK (INHALE 2 PUTT(S) TWCE A DAY BY INHALATION ROUTE)
  27. ZYRTEC [Concomitant]
     Active Substance: CETIRIZINE HYDROCHLORIDE
     Dosage: UNK, AS NEEDED

REACTIONS (2)
  - Pruritus [Unknown]
  - Hypersensitivity [Unknown]
